FAERS Safety Report 5075732-5 (Version None)
Quarter: 2006Q3

REPORT INFORMATION
  Report Type: 
  Country: None (occurrence: None)
  Receive Date: 20060804
  Receipt Date: 20060727
  Transmission Date: 20061208
  Serious: Yes (Hospitalization)
  Sender: FDA-Public Use
  Company Number: ENTC2006-0218

PATIENT
  Age: 84 Year
  Sex: Female

DRUGS (8)
  1. STALEVO 100 [Suspect]
     Indication: PARKINSON'S DISEASE
     Dosage: 100/25/200 MG X3 ORAL
     Route: 048
     Dates: start: 20060214, end: 20060603
  2. DEROXAT [Suspect]
     Indication: DYSTHYMIC DISORDER
     Dosage: 20 MG ORAL
     Route: 048
     Dates: start: 20060503
  3. LAROXYL [Concomitant]
  4. LIPANTHYL [Concomitant]
  5. SERESTA [Concomitant]
  6. DAFALGAN [Concomitant]
  7. VASTAREL [Concomitant]
  8. NOVONORM [Concomitant]

REACTIONS (2)
  - EPISTAXIS [None]
  - SKIN HAEMORRHAGE [None]
